FAERS Safety Report 16731023 (Version 5)
Quarter: 2020Q3

REPORT INFORMATION
  Report Type: Spontaneous
  Country: US (occurrence: US)
  Receive Date: 20190822
  Receipt Date: 20200810
  Transmission Date: 20201102
  Serious: No
  Sender: FDA-Public Use
  Company Number: US-PFIZER INC-2019360705

PATIENT
  Age: 61 Year
  Sex: Female

DRUGS (5)
  1. IBRANCE [Suspect]
     Active Substance: PALBOCICLIB
     Indication: PAIN
  2. IBRANCE [Suspect]
     Active Substance: PALBOCICLIB
     Indication: BREAST CANCER FEMALE
     Dosage: 75 MG, UNK
  3. IBRANCE [Suspect]
     Active Substance: PALBOCICLIB
     Indication: BLADDER CANCER
     Dosage: 75 MG, DAILY (DIRECTIONS SIG: 1 PO (ORALLY) DAILY)
     Route: 048
  4. IBRANCE [Suspect]
     Active Substance: PALBOCICLIB
     Indication: HYPERTENSIVE EMERGENCY
  5. IBRANCE [Suspect]
     Active Substance: PALBOCICLIB
     Indication: HYPERLIPIDAEMIA

REACTIONS (2)
  - Confusional state [Unknown]
  - Malaise [Unknown]
